FAERS Safety Report 9293146 (Version 1)
Quarter: 2013Q2

REPORT INFORMATION
  Report Type: Spontaneous
  Country: US (occurrence: None)
  Receive Date: 20130514
  Receipt Date: 20130514
  Transmission Date: 20140414
  Serious: Yes (Other)
  Sender: FDA-Public Use
  Company Number: 2013P1005577

PATIENT
  Age: 70 Year
  Sex: Female

DRUGS (1)
  1. INFUMORPH [Suspect]
     Indication: PAIN
     Route: 037

REACTIONS (5)
  - Back pain [None]
  - Pain in extremity [None]
  - Pain [None]
  - Device leakage [None]
  - Catheter site effusion [None]
